FAERS Safety Report 6527937-1 (Version None)
Quarter: 2009Q4

REPORT INFORMATION
  Report Type: 
  Country: None (occurrence: None)
  Receive Date: 20091222
  Receipt Date: 20090921
  Transmission Date: 20100525
  Serious: No
  Sender: FDA-Public Use
  Company Number: ALL1-2009-02821

PATIENT
  Age: 53 Year
  Sex: Female
  Weight: 56.7 kg

DRUGS (3)
  1. VYVANSE [Suspect]
     Indication: ATTENTION DEFICIT/HYPERACTIVITY DISORDER
     Dosage: 70 MG, 1X/DAY:QD, ORAL ; 1X/DAY:QD (1/2 OF A 70MG CAPSULE), ORAL
     Route: 048
     Dates: start: 20090501, end: 20090601
  2. VYVANSE [Suspect]
     Indication: ATTENTION DEFICIT/HYPERACTIVITY DISORDER
     Dosage: 70 MG, 1X/DAY:QD, ORAL ; 1X/DAY:QD (1/2 OF A 70MG CAPSULE), ORAL
     Route: 048
     Dates: start: 20090601
  3. PROGESTERONE [Concomitant]

REACTIONS (7)
  - DECREASED APPETITE [None]
  - DRUG DOSE OMISSION [None]
  - DRUG EFFECT INCREASED [None]
  - FEELING JITTERY [None]
  - NERVOUSNESS [None]
  - WEIGHT DECREASED [None]
  - WRONG TECHNIQUE IN DRUG USAGE PROCESS [None]
